FAERS Safety Report 6554369-2 (Version None)
Quarter: 2010Q1

REPORT INFORMATION
  Report Type: 
  Country: None (occurrence: None)
  Receive Date: 20100127
  Receipt Date: 20100119
  Transmission Date: 20100710
  Serious: Yes (Hospitalization)
  Sender: FDA-Public Use
  Company Number: B0627219A

PATIENT
  Age: 75 Year
  Sex: Female

DRUGS (4)
  1. LAMICTAL [Suspect]
     Indication: DRUG USE FOR UNKNOWN INDICATION
     Route: 048
  2. CYMBALTA [Suspect]
     Indication: DRUG USE FOR UNKNOWN INDICATION
     Route: 048
     Dates: end: 20091228
  3. AMLOR [Concomitant]
     Route: 065
  4. LIPANTHYL [Concomitant]
     Route: 065

REACTIONS (1)
  - MIXED LIVER INJURY [None]
